FAERS Safety Report 10912093 (Version 1)
Quarter: 2015Q1

REPORT INFORMATION
  Report Type: Spontaneous
  Country: US (occurrence: None)
  Receive Date: 20150310
  Receipt Date: 20150310
  Transmission Date: 20150721
  Serious: Yes (Disabling)
  Sender: FDA-Public Use
  Company Number: None

PATIENT
  Age: 60 Year
  Sex: Female
  Weight: 63.5 kg

DRUGS (6)
  1. VITAMIN D [Concomitant]
     Active Substance: CHOLECALCIFEROL
  2. ASPIRIN. [Concomitant]
     Active Substance: ASPIRIN
  3. LEVOTHYROXINE [Concomitant]
     Active Substance: LEVOTHYROXINE
  4. ALEVE [Concomitant]
     Active Substance: NAPROXEN SODIUM
  5. VERAMYST [Suspect]
     Active Substance: FLUTICASONE FUROATE
     Indication: RHINITIS ALLERGIC
     Dosage: 1SPRAY EACH NOSTRIL
     Route: 055
     Dates: start: 20110815, end: 20141230
  6. CYANOCOBALAMIN. [Concomitant]
     Active Substance: CYANOCOBALAMIN

REACTIONS (7)
  - Anxiety [None]
  - Nausea [None]
  - Blood pressure increased [None]
  - Balance disorder [None]
  - Strabismus [None]
  - Dizziness [None]
  - Binocular eye movement disorder [None]

NARRATIVE: CASE EVENT DATE: 20111125
